FAERS Safety Report 9825139 (Version 1)
Quarter: 2013Q4

REPORT INFORMATION
  Report Type: Spontaneous
  Country: US (occurrence: None)
  Receive Date: 20131028
  Receipt Date: 20131028
  Transmission Date: 20140711
  Serious: Yes (Other)
  Sender: FDA-Public Use
  Company Number: 2013US001123

PATIENT
  Age: 55 Year
  Sex: Female
  Weight: 51 kg

DRUGS (4)
  1. ICLUSIG (PONATINIB) TABLET, 45MG [Suspect]
     Indication: CHRONIC MYELOID LEUKAEMIA
     Dosage: 45 MG, QD, ORAL
     Route: 048
     Dates: start: 20130129
  2. LEVOTHYROXINE (LEVOTHYROXINE) [Concomitant]
  3. HYDROCODONE (HYDROCODONE) [Concomitant]
  4. PROMETHAZINE (PROMETHAZINE) [Concomitant]

REACTIONS (6)
  - Musculoskeletal stiffness [None]
  - Breast pain [None]
  - Pain of skin [None]
  - Fatigue [None]
  - Nausea [None]
  - Rash pruritic [None]
